FAERS Safety Report 9299348 (Version 1)
Quarter: 2013Q2

REPORT INFORMATION
  Report Type: Spontaneous
  Country: AU (occurrence: AU)
  Receive Date: 20130520
  Receipt Date: 20130520
  Transmission Date: 20140414
  Serious: Yes (Life-Threatening, Hospitalization, Other)
  Sender: FDA-Public Use
  Company Number: AU-B.I. PHARMACEUTICALS,INC./RIDGEFIELD-2013-AU-00428AU

PATIENT
  Age: 73 Year
  Sex: Male
  Weight: 85 kg

DRUGS (6)
  1. PRADAXA [Suspect]
     Indication: ATRIAL FIBRILLATION
     Dosage: 300 MG
     Dates: start: 20110920
  2. AVAPRO [Concomitant]
     Dosage: 300 MG
  3. TAMBOCOR [Concomitant]
     Dosage: 200 NR
  4. ZIMSTAT [Concomitant]
     Dosage: 40 NR
  5. LEXAPRO [Concomitant]
     Dosage: 20 NR
  6. NOTEN [Concomitant]
     Dosage: 25 NR

REACTIONS (9)
  - Cerebellar haematoma [Recovered/Resolved with Sequelae]
  - Subdural haematoma [Recovered/Resolved with Sequelae]
  - Facial bones fracture [Unknown]
  - Cerebral haemorrhage [Recovered/Resolved with Sequelae]
  - Deep vein thrombosis [Unknown]
  - Sepsis [Unknown]
  - Pneumocephalus [Unknown]
  - Head injury [Recovered/Resolved with Sequelae]
  - Fall [Recovered/Resolved with Sequelae]
